APPROVED DRUG PRODUCT: CAYSTON
Active Ingredient: AZTREONAM
Strength: 75MG/VIAL
Dosage Form/Route: FOR SOLUTION;INHALATION
Application: N050814 | Product #001
Applicant: GILEAD SCIENCES INC
Approved: Feb 22, 2010 | RLD: Yes | RS: Yes | Type: RX